FAERS Safety Report 6700877-0 (Version None)
Quarter: 2010Q2

REPORT INFORMATION
  Report Type: 
  Country: None (occurrence: None)
  Receive Date: 20100428
  Receipt Date: 20100421
  Transmission Date: 20101027
  Serious: Yes (Congenital Anomaly, Other)
  Sender: FDA-Public Use
  Company Number: CA-B.I. PHARMACEUTICALS,INC./RIDGEFIELD-2010-DE-02308BY

PATIENT
  Sex: Male

DRUGS (2)
  1. TELMISARTAN [Suspect]
     Indication: HYPERTENSION
     Route: 064
  2. ROSUVASTATIN [Suspect]
     Indication: HYPERLIPIDAEMIA
     Route: 064

REACTIONS (5)
  - CONGENITAL BRAIN DAMAGE [None]
  - DEVELOPMENTAL DELAY [None]
  - DYSMORPHISM [None]
  - GROWTH RETARDATION [None]
  - MICROCEPHALY [None]
